FAERS Safety Report 4599387-9 (Version None)
Quarter: 2005Q1

REPORT INFORMATION
  Report Type: 
  Country: None (occurrence: None)
  Receive Date: 20050302
  Receipt Date: 20050302
  Transmission Date: 20050727
  Serious: Yes (Hospitalization)
  Sender: FDA-Public Use
  Company Number: None

PATIENT
  Age: 62 Year
  Sex: Female
  Weight: 65.7716 kg

DRUGS (11)
  1. ADRIAMYCIN PFS [Suspect]
     Indication: ENDOMETRIAL CANCER
     Dosage: 15 MG IV
     Route: 042
     Dates: start: 20050225
  2. CISPLATIN [Suspect]
     Indication: ENDOMETRIAL CANCER
     Dosage: 84 MG IV
     Route: 042
     Dates: start: 20050225
  3. GLUCOPHAGE [Concomitant]
  4. LISINOPRIL [Concomitant]
  5. ZOCOR [Concomitant]
  6. THIOTHIXENE [Concomitant]
  7. BENZTROPINE [Concomitant]
  8. LOPRESSOR [Concomitant]
  9. OSCAL (+) [Concomitant]
  10. AZOPT [Concomitant]
  11. PREDNISOLONE [Concomitant]

REACTIONS (3)
  - BLOOD PRESSURE SYSTOLIC INCREASED [None]
  - ELECTROCARDIOGRAM ST SEGMENT DEPRESSION [None]
  - SINUS TACHYCARDIA [None]
